FAERS Safety Report 4576565-6 (Version None)
Quarter: 2005Q1

REPORT INFORMATION
  Report Type: 
  Country: None (occurrence: None)
  Receive Date: 20050119
  Receipt Date: 20040329
  Transmission Date: 20050727
  Serious: Yes (Hospitalization)
  Sender: FDA-Public Use
  Company Number: A03200302662

PATIENT
  Age: 60 Year
  Sex: Female

DRUGS (2)
  1. PLAVIX [Suspect]
     Dosage: ORAL
     Route: 048
  2. IMATINIB - UNKNOWN - UNIT DOSE : UNKNOWN [Suspect]
     Indication: CHRONIC MYELOID LEUKAEMIA
     Dosage: 800 MG QD - ORAL
     Route: 048
     Dates: start: 20000128

REACTIONS (1)
  - HAEMATOCHEZIA [None]
